FAERS Safety Report 8932711 (Version 1)
Quarter: 2012Q4

REPORT INFORMATION
  Report Type: Spontaneous
  Country: US (occurrence: None)
  Receive Date: 20121126
  Receipt Date: 20121126
  Transmission Date: 20130627
  Serious: Yes (Hospitalization)
  Sender: FDA-Public Use
  Company Number: None

PATIENT
  Age: 81 Year
  Sex: Male
  Weight: 108.1 kg

DRUGS (6)
  1. AMIODARONE 200MG [Suspect]
     Indication: HYPERTENSION
     Route: 048
  2. LISINOPRIL 5 MG [Suspect]
     Indication: HYPERTENSION
     Route: 048
  3. FOLIC ACID [Concomitant]
  4. TAMSULOSIN [Concomitant]
  5. ASPRIN [Concomitant]
  6. CITALOPRAM [Concomitant]

REACTIONS (2)
  - Bradycardia [None]
  - Orthostatic hypotension [None]
